FAERS Safety Report 7811401-3 (Version None)
Quarter: 2011Q4

REPORT INFORMATION
  Report Type: 
  Country: None (occurrence: None)
  Receive Date: 20111013
  Receipt Date: 20111005
  Transmission Date: 20120403
  Serious: Yes (Other)
  Sender: FDA-Public Use
  Company Number: GB-PFIZER INC-2011237402

PATIENT
  Sex: Female

DRUGS (2)
  1. VORICONAZOLE [Suspect]
  2. ANIDULAFUNGIN [Suspect]

REACTIONS (2)
  - THROMBOCYTOPENIA [None]
  - TOXICITY TO VARIOUS AGENTS [None]
